FAERS Safety Report 16084272 (Version 1)
Quarter: 2019Q2

REPORT INFORMATION
  Report Type: Spontaneous
  Country: US (occurrence: US)
  Receive Date: 20190316
  Receipt Date: 20190316
  Transmission Date: 20190711
  Serious: Yes (Hospitalization, Other)
  Sender: FDA-Public Use
  Company Number: None

PATIENT
  Age: 48 Year
  Sex: Male
  Weight: 117.9 kg

DRUGS (5)
  1. FISH OIL [Concomitant]
     Active Substance: FISH OIL
  2. VITAMIN D NOS [Concomitant]
     Active Substance: VITAMIN D NOS
  3. MAGNESIUM [Concomitant]
     Active Substance: MAGNESIUM
  4. TESTOSTERONE CYPIONATE INJECTION 2,000 MG/10ML [Suspect]
     Active Substance: TESTOSTERONE CYPIONATE
     Indication: BLOOD TESTOSTERONE DECREASED
     Dosage: ?          QUANTITY:1 INJECTION(S);OTHER FREQUENCY:WEEKLY;OTHER ROUTE:INJECTION INTO THIGH?
     Dates: start: 20190223, end: 20190223
  5. MULTI-VITAMINS [Concomitant]

REACTIONS (8)
  - Pain in extremity [None]
  - Injection site pain [None]
  - Suspected product contamination [None]
  - Impaired work ability [None]
  - Suspected transmission of an infectious agent via product [None]
  - Wound sepsis [None]
  - Erythema [None]
  - Peripheral swelling [None]

NARRATIVE: CASE EVENT DATE: 20190223
